FAERS Safety Report 23822562 (Version 1)
Quarter: 2024Q2

REPORT INFORMATION
  Report Type: Spontaneous
  Country: HR (occurrence: HR)
  Receive Date: 20240506
  Receipt Date: 20240506
  Transmission Date: 20240716
  Serious: Yes (Other)
  Sender: FDA-Public Use
  Company Number: None

PATIENT
  Age: 25 Year
  Sex: Male
  Weight: 70 kg

DRUGS (3)
  1. IBUPROFEN [Suspect]
     Active Substance: IBUPROFEN
     Indication: Product used for unknown indication
     Dosage: 3000 MILLIGRAM, QD (4-5 IBUPROFEN IN GRANULES A 600 MG)
     Route: 048
     Dates: start: 20240328, end: 20240328
  2. ALPRAZOLAM [Suspect]
     Active Substance: ALPRAZOLAM
     Indication: Product used for unknown indication
     Dosage: UNK (10 TBL OF HELEX, PRODUCT STRENGTH UNKNOWN)
     Route: 048
     Dates: start: 20240328, end: 20240328
  3. ACETAMINOPHEN\CAFFEINE\CODEINE\PROPYPHENAZONE [Suspect]
     Active Substance: ACETAMINOPHEN\CAFFEINE\CODEINE\PROPYPHENAZONE
     Indication: Product used for unknown indication
     Dosage: UNK (UNK. 1 BOX OF CAFFETIN, PRODUCT STRENGTH UNKNOWN)
     Route: 048
     Dates: start: 20240328, end: 20240328

REACTIONS (2)
  - Suicide attempt [Unknown]
  - Vomiting [Unknown]

NARRATIVE: CASE EVENT DATE: 20240328
